FAERS Safety Report 8423322-6 (Version None)
Quarter: 2012Q2

REPORT INFORMATION
  Report Type: 
  Country: None (occurrence: None)
  Receive Date: 20120608
  Receipt Date: 20120531
  Transmission Date: 20120825
  Serious: Yes (Hospitalization, Disabling)
  Sender: FDA-Public Use
  Company Number: GB-PFIZER INC-2012115125

PATIENT
  Age: 70 Year
  Sex: Female

DRUGS (3)
  1. RAMIPRIL [Suspect]
     Dosage: UNK
     Dates: end: 20120101
  2. RAMIPRIL [Suspect]
     Indication: HYPERTENSION
     Dosage: 5 MG (5 MG,1 IN 1 D)
     Route: 048
     Dates: start: 20110801, end: 20110101
  3. RAMIPRIL [Suspect]
     Dosage: UNK
     Dates: start: 20110101, end: 20110101

REACTIONS (4)
  - CELLULITIS [None]
  - PEMPHIGOID [None]
  - DERMATITIS ALLERGIC [None]
  - DERMATITIS [None]
